FAERS Safety Report 5796754-2 (Version None)
Quarter: 2008Q2

REPORT INFORMATION
  Report Type: 
  Country: None (occurrence: None)
  Receive Date: 20080627
  Receipt Date: 20080616
  Transmission Date: 20081010
  Serious: Yes (Hospitalization, Other)
  Sender: FDA-Public Use
  Company Number: 49586

PATIENT
  Age: 18 Year
  Sex: Male

DRUGS (1)
  1. AZATHIOPRINE SODIUM [Suspect]
     Indication: COLITIS ULCERATIVE

REACTIONS (5)
  - DIARRHOEA [None]
  - FATIGUE [None]
  - PULMONARY EOSINOPHILIA [None]
  - PULMONARY TOXICITY [None]
  - THROMBOCYTHAEMIA [None]
